FAERS Safety Report 23982945 (Version 10)
Quarter: 2024Q4

REPORT INFORMATION
  Report Type: Spontaneous
  Country: US (occurrence: US)
  Receive Date: 20240617
  Receipt Date: 20241111
  Transmission Date: 20250114
  Serious: Yes (Hospitalization, Other)
  Sender: PFIZER
  Company Number: US-PFIZER INC-202400193023

PATIENT
  Age: 73 Year
  Sex: Female
  Weight: 73.93 kg

DRUGS (10)
  1. TUKYSA [Suspect]
     Active Substance: TUCATINIB
     Indication: Neoplasm malignant
     Dosage: TWO 150 MG TABLETS EVERY 12 HOURS BY MOUTH WITH OR WITHOUT FOOD. TAKES EVERY SINGLE DAY.
     Route: 048
     Dates: start: 20240608
  2. TUKYSA [Suspect]
     Active Substance: TUCATINIB
     Indication: Breast cancer metastatic
     Dosage: 2 TABLETS BY MOUTH TWICE DAILY, AT 9AM AND 9PM
     Route: 048
     Dates: start: 20240608
  3. TUKYSA [Suspect]
     Active Substance: TUCATINIB
     Dosage: TUKYSA 150MG; 1 TABLET TWICE A DAY, AND TUKYSA 50MG; 2 TABLETS TWICE A DAY.
  4. TUKYSA [Suspect]
     Active Substance: TUCATINIB
     Dosage: TUKYSA 150MG; 1 TABLET TWICE DAILY
  5. XELODA [Suspect]
     Active Substance: CAPECITABINE
     Indication: Neoplasm malignant
     Dosage: TAKE 3 TABLETS OF 500 MG HALF AN HOUR AFTER BREAKFAST AND THEN HALF AN HOUR AFTER EVENING MEAL
     Dates: start: 20240609
  6. FAMOTIDINE [Concomitant]
     Active Substance: FAMOTIDINE
     Dosage: TAKES IN THE MORNING AND AT NIGHT
  7. LISINOPRIL [Concomitant]
     Active Substance: LISINOPRIL
     Indication: Blood pressure measurement
     Dosage: 20 MG DAILY
  8. METOPROLOL [Concomitant]
     Active Substance: METOPROLOL
     Indication: Cardiac disorder
     Dosage: 25 MG
     Dates: start: 2023
  9. OMEPRAZOLE [Concomitant]
     Active Substance: OMEPRAZOLE
     Indication: Gastrooesophageal reflux disease
     Dosage: 40 MG DAILY
  10. ROSUVASTATIN [Concomitant]
     Active Substance: ROSUVASTATIN
     Indication: Blood cholesterol
     Dosage: 10 MG ONCE A DAY

REACTIONS (20)
  - Infection [Unknown]
  - Lymphadenopathy [Unknown]
  - Retching [Recovered/Resolved]
  - Necrotising fasciitis streptococcal [Unknown]
  - Weight decreased [Unknown]
  - Coccydynia [Unknown]
  - Erythema [Unknown]
  - Fatigue [Not Recovered/Not Resolved]
  - Haemorrhage [Unknown]
  - Illness [Unknown]
  - Nail bed bleeding [Unknown]
  - Nausea [Recovering/Resolving]
  - Neoplasm progression [Unknown]
  - Pain [Unknown]
  - Pain in extremity [Unknown]
  - Palmar-plantar erythrodysaesthesia syndrome [Unknown]
  - Rhinorrhoea [Not Recovered/Not Resolved]
  - Somnolence [Unknown]
  - Vomiting [Recovered/Resolved]
  - Illness [Unknown]

NARRATIVE: CASE EVENT DATE: 20240101
